FAERS Safety Report 4566822-1 (Version None)
Quarter: 2005Q1

REPORT INFORMATION
  Report Type: 
  Country: None (occurrence: None)
  Receive Date: 20050201
  Receipt Date: 20020102
  Transmission Date: 20050727
  Serious: Yes (Other)
  Sender: FDA-Public Use
  Company Number: US-BRISTOL-MYERS SQUIBB COMPANY-11833670

PATIENT
  Age: 35 Year
  Sex: Female

DRUGS (14)
  1. STADOL [Suspect]
     Route: 045
     Dates: start: 19940902
  2. ZOLOFT [Concomitant]
  3. TRAZODONE HCL [Concomitant]
  4. PROMETHAZINE [Concomitant]
  5. COMPAZINE [Concomitant]
  6. ALPRAZOLAM [Concomitant]
  7. PROPRANOLOL HYDROCHLORIDE [Concomitant]
  8. CHLORDIAZEPOXIDE + CLIDINIUM [Concomitant]
  9. HYDROXYZINE PAMOATE [Concomitant]
  10. PRILOSEC [Concomitant]
  11. EFFEXOR [Concomitant]
  12. ULTRAM [Concomitant]
  13. PENICILLIN [Concomitant]
  14. LUVOX [Concomitant]

REACTIONS (1)
  - DEPENDENCE [None]
